FAERS Safety Report 9889289 (Version 2)
Quarter: 2014Q1

REPORT INFORMATION
  Report Type: Spontaneous
  Country: US (occurrence: US)
  Receive Date: 20140211
  Receipt Date: 20140211
  Transmission Date: 20141002
  Serious: No
  Sender: FDA-Public Use
  Company Number: US-GILEAD-2012-0051601

PATIENT
  Age: 45 Year
  Sex: Male

DRUGS (1)
  1. COMPLERA [Suspect]
     Indication: PRODUCT USED FOR UNKNOWN INDICATION
     Dosage: UNK
     Dates: start: 20111108

REACTIONS (2)
  - Haemoglobin increased [Recovered/Resolved]
  - Haematocrit increased [Unknown]
